FAERS Safety Report 8006978-1 (Version None)
Quarter: 2011Q4

REPORT INFORMATION
  Report Type: 
  Country: None (occurrence: None)
  Receive Date: 20111227
  Receipt Date: 20111219
  Transmission Date: 20120403
  Serious: Yes (Other)
  Sender: FDA-Public Use
  Company Number: US-BAYER-2011-122070

PATIENT
  Age: 20 Year
  Sex: Female

DRUGS (3)
  1. DROSPIRENONE AND ETHINYL ESTRADIOL [Suspect]
     Dosage: UNK
     Route: 048
     Dates: start: 20100301
  2. DROSPIRENONE AND ETHINYL ESTRADIOL [Suspect]
     Dosage: UNK
     Dates: start: 20100601
  3. YAZ [Suspect]
     Dosage: UNK
     Route: 048
     Dates: start: 20070901, end: 20100601

REACTIONS (2)
  - GALLBLADDER INJURY [None]
  - INJURY [None]
